FAERS Safety Report 6686869-9 (Version None)
Quarter: 2010Q2

REPORT INFORMATION
  Report Type: 
  Country: None (occurrence: None)
  Receive Date: 20100416
  Receipt Date: 20100416
  Transmission Date: 20101027
  Serious: No
  Sender: FDA-Public Use
  Company Number: None

PATIENT
  Age: 45 Year
  Sex: Female
  Weight: 68.0396 kg

DRUGS (1)
  1. KEFLEX [Suspect]
     Indication: TOOTH INFECTION
     Dosage: 250 MG. 1 CAPSULE 4 X DAY 047 (ORAL)
     Route: 048
     Dates: start: 20100222, end: 20100313

REACTIONS (1)
  - CLOSTRIDIUM DIFFICILE COLITIS [None]
